FAERS Safety Report 8707503 (Version 2)
Quarter: 2013Q4

REPORT INFORMATION
  Report Type: Report from Study
  Country: US (occurrence: US)
  Receive Date: 20120804
  Receipt Date: 20131101
  Transmission Date: 20140711
  Serious: No
  Sender: FDA-Public Use
  Company Number: US-009507513-1207USA008539

PATIENT
  Age: 55 Year
  Sex: Male
  Weight: 99.77 kg

DRUGS (18)
  1. VICTRELIS [Suspect]
     Indication: HEPATITIS C
     Dosage: 800 MG, TID
     Dates: start: 20120430
  2. REBETOL [Suspect]
  3. PRILOSEC [Suspect]
  4. FINASTERIDE [Suspect]
  5. PEGASYS [Suspect]
  6. NADOLOL [Concomitant]
  7. NEURONTIN [Concomitant]
  8. ASCORBIC ACID [Concomitant]
  9. VICODIN [Concomitant]
  10. DULCOLAX [Concomitant]
  11. SPIRONOLACT [Concomitant]
  12. EPIPEN [Concomitant]
  13. VITAMINS (UNSPECIFIED) [Concomitant]
  14. GAS-X [Concomitant]
  15. QUETIAPINE FUMARATE [Concomitant]
  16. WELLBUTRIN [Concomitant]
  17. ALDACTONE INJECTION [Concomitant]
  18. SEROQUEL [Concomitant]

REACTIONS (3)
  - Fatigue [Unknown]
  - Anaemia [Unknown]
  - Arthralgia [Unknown]
